FAERS Safety Report 23048819 (Version 2)
Quarter: 2023Q4

REPORT INFORMATION
  Report Type: Other
  Country: GB (occurrence: GB)
  Receive Date: 20231010
  Receipt Date: 20231104
  Transmission Date: 20240109
  Serious: Yes (Other)
  Sender: FDA-Public Use
  Company Number: GB-MACLEODS PHARMA EU LTD-MAC2023043727

PATIENT

DRUGS (2)
  1. ARIPIPRAZOLE [Suspect]
     Active Substance: ARIPIPRAZOLE
     Indication: Psychotic disorder
     Dosage: 15 MILLIGRAM
     Route: 065
     Dates: start: 20161001, end: 20230427
  2. PROPRANOLOL [Concomitant]
     Active Substance: PROPRANOLOL HYDROCHLORIDE
     Indication: Adverse drug reaction
     Dosage: UNK UNK, PRN
     Route: 065
     Dates: start: 20190101

REACTIONS (6)
  - Liver injury [Not Recovered/Not Resolved]
  - Muscle twitching [Unknown]
  - Nephrolithiasis [Unknown]
  - Psychotic disorder [Unknown]
  - Pain [Unknown]
  - Medication error [Unknown]

NARRATIVE: CASE EVENT DATE: 20230101
